FAERS Safety Report 23032961 (Version 1)
Quarter: 2023Q4

REPORT INFORMATION
  Report Type: Report from Study
  Country: SE (occurrence: DK)
  Receive Date: 20231005
  Receipt Date: 20231005
  Transmission Date: 20240109
  Serious: Yes (Hospitalization, Other)
  Sender: FDA-Public Use
  Company Number: SE-ASTELLAS-2023US021781

PATIENT
  Age: 53 Year
  Sex: Female

DRUGS (1)
  1. TACROLIMUS [Suspect]
     Active Substance: TACROLIMUS
     Indication: Product used for unknown indication
     Dosage: UNK UNK, UNKNOWN FREQ.
     Route: 065
     Dates: start: 20181008

REACTIONS (12)
  - Cataract [Recovered/Resolved]
  - Oral candidiasis [Recovered/Resolved]
  - Herpes virus infection [Recovered/Resolved]
  - Anaemia [Recovered/Resolved]
  - Diaphragmatic paralysis [Unknown]
  - Renal impairment [Unknown]
  - Viral infection [Recovered/Resolved]
  - Leukopenia [Recovered/Resolved]
  - Renal impairment [Recovered/Resolved]
  - Diabetes mellitus [Recovered/Resolved]
  - Bacterial infection [Recovered/Resolved]
  - Bacterial infection [Recovered/Resolved]

NARRATIVE: CASE EVENT DATE: 20181008
